FAERS Safety Report 4996163-X (Version None)
Quarter: 2006Q2

REPORT INFORMATION
  Report Type: 
  Country: None (occurrence: None)
  Receive Date: 20060504
  Receipt Date: 20060421
  Transmission Date: 20061013
  Serious: Yes (Hospitalization)
  Sender: FDA-Public Use
  Company Number: T200600101

PATIENT
  Age: 60 Year
  Sex: Male

DRUGS (3)
  1. HEXABRIX [Suspect]
     Indication: ARTERIOGRAM CORONARY
     Dosage: 200 ML SINGLE, INTRA-ARTERIAL
     Route: 013
     Dates: start: 20060214, end: 20060214
  2. HEPARIN [Concomitant]
  3. CORVASAL         (MOLSIDOMINE) [Concomitant]

REACTIONS (7)
  - ANAPHYLACTIC SHOCK [None]
  - CHILLS [None]
  - DERMATITIS EXFOLIATIVE [None]
  - HYPERTHERMIA [None]
  - LEUKOPENIA [None]
  - LIVEDO RETICULARIS [None]
  - SOMNOLENCE [None]
